FAERS Safety Report 18607015 (Version 1)
Quarter: 2020Q4

REPORT INFORMATION
  Report Type: Spontaneous
  Country: US (occurrence: US)
  Receive Date: 20201211
  Receipt Date: 20201211
  Transmission Date: 20210114
  Serious: Yes (Hospitalization, Other)
  Sender: FDA-Public Use
  Company Number: US-TAKEDA-2020TUS054794

PATIENT
  Sex: Female
  Weight: 106.58 kg

DRUGS (18)
  1. EPINEPHRINE. [Concomitant]
     Active Substance: EPINEPHRINE
  2. GAMMAGARD LIQUID [Suspect]
     Active Substance: HUMAN IMMUNOGLOBULIN G
     Indication: CONNECTIVE TISSUE DISORDER
     Dosage: 42.5 GRAM,D5CD4WK
     Route: 042
     Dates: start: 20201106
  3. GAMMAGARD LIQUID [Suspect]
     Active Substance: HUMAN IMMUNOGLOBULIN G
     Dosage: 400 MILLIGRAM/KILOGRAM, EVERY 4 WEEKS
     Route: 042
     Dates: start: 20201106
  4. FAMOTIDINE. [Concomitant]
     Active Substance: FAMOTIDINE
  5. METHOCARBAMOL. [Concomitant]
     Active Substance: METHOCARBAMOL
  6. ACETAMINOPHEN. [Concomitant]
     Active Substance: ACETAMINOPHEN
  7. GABAPENTIN. [Concomitant]
     Active Substance: GABAPENTIN
  8. PERCOCET [Concomitant]
     Active Substance: ACETAMINOPHEN\OXYCODONE HYDROCHLORIDE
  9. PREDNISONE. [Concomitant]
     Active Substance: PREDNISONE
  10. ATENOLOL. [Concomitant]
     Active Substance: ATENOLOL
  11. HEPARIN [Concomitant]
     Active Substance: HEPARIN SODIUM
  12. LIDOCAINE. [Concomitant]
     Active Substance: LIDOCAINE
  13. NORMAL SALINE [Concomitant]
     Active Substance: SODIUM CHLORIDE
  14. IMURAN [Concomitant]
     Active Substance: AZATHIOPRINE
  15. DIPHENHYDRAMINE. [Concomitant]
     Active Substance: DIPHENHYDRAMINE
  16. LMX4 [Concomitant]
     Active Substance: LIDOCAINE
  17. SODIUM CHLORIDE. [Concomitant]
     Active Substance: SODIUM CHLORIDE
  18. VITAMIN D2 [Concomitant]
     Active Substance: ERGOCALCIFEROL

REACTIONS (5)
  - Pyrexia [Unknown]
  - Infusion related reaction [Unknown]
  - Migraine [Unknown]
  - Diverticulitis [Unknown]
  - Condition aggravated [Unknown]
